FAERS Safety Report 17017522 (Version 1)
Quarter: 2019Q4

REPORT INFORMATION
  Report Type: Spontaneous
  Country: US (occurrence: US)
  Receive Date: 20191111
  Receipt Date: 20191111
  Transmission Date: 20200122
  Serious: No
  Sender: FDA-Public Use
  Company Number: US-ALKERMES INC.-ALK-2019-005086

PATIENT
  Age: 28 Year
  Sex: Male
  Weight: 106.58 kg

DRUGS (2)
  1. OTHER THERAPEUTIC PRODUCTS [Concomitant]
     Active Substance: UNSPECIFIED INGREDIENT
     Indication: PRODUCT USED FOR UNKNOWN INDICATION
     Dosage: UNK
     Route: 065
  2. ARISTADA [Suspect]
     Active Substance: ARIPIPRAZOLE LAUROXIL
     Indication: SCHIZOAFFECTIVE DISORDER
     Dosage: 882 MG, QMO
     Route: 030

REACTIONS (4)
  - Needle issue [Recovering/Resolving]
  - Incorrect route of product administration [Unknown]
  - Wrong technique in product usage process [Recovered/Resolved]
  - Off label use [Not Recovered/Not Resolved]
